FAERS Safety Report 24303555 (Version 1)
Quarter: 2024Q3

REPORT INFORMATION
  Report Type: Other
  Country: KR (occurrence: KR)
  Receive Date: 20240910
  Receipt Date: 20240910
  Transmission Date: 20241017
  Serious: Yes (Life-Threatening)
  Sender: B BRAUN
  Company Number: KR-B.Braun Medical Inc.-2161437

PATIENT
  Age: 56 Year
  Sex: Male

DRUGS (8)
  1. MEROPENEM [Suspect]
     Active Substance: MEROPENEM
     Indication: Sepsis
  2. VANCOMYCIN [Suspect]
     Active Substance: VANCOMYCIN
  3. CYCLOSPORINE [Concomitant]
     Active Substance: CYCLOSPORINE
  4. DEXAMETHASONE [Concomitant]
     Active Substance: DEXAMETHASONE
  5. CYCLOPHOSPHAMIDE [Concomitant]
     Active Substance: CYCLOPHOSPHAMIDE
  6. METHYLPREDNISOLONE [Concomitant]
     Active Substance: METHYLPREDNISOLONE
  7. Factor 8 inhibitor bypassing ?activity (FEIBA) [Concomitant]
  8. Recombinant factor VIIa (rFVIIa; NovoSeven) [Concomitant]

REACTIONS (1)
  - Drug ineffective [Unknown]
